FAERS Safety Report 7315368-6 (Version None)
Quarter: 2011Q1

REPORT INFORMATION
  Report Type: 
  Country: None (occurrence: None)
  Receive Date: 20110225
  Receipt Date: 20110211
  Transmission Date: 20110831
  Serious: Yes (Other)
  Sender: FDA-Public Use
  Company Number: B0692841A

PATIENT

DRUGS (1)
  1. NIQUITIN PATCH [Suspect]
     Indication: SMOKING CESSATION THERAPY
     Route: 062

REACTIONS (20)
  - HYPOAESTHESIA [None]
  - SLEEP DISORDER [None]
  - APPLICATION SITE IRRITATION [None]
  - HEADACHE [None]
  - ASTHENIA [None]
  - WITHDRAWAL SYNDROME [None]
  - PAIN IN EXTREMITY [None]
  - APPLICATION SITE REACTION [None]
  - HYPERSOMNIA [None]
  - POOR QUALITY SLEEP [None]
  - INFLUENZA [None]
  - MOVEMENT DISORDER [None]
  - FATIGUE [None]
  - DECREASED APPETITE [None]
  - STRESS [None]
  - DISTRACTIBILITY [None]
  - APPLICATION SITE PRURITUS [None]
  - APPLICATION SITE RASH [None]
  - HOMICIDAL IDEATION [None]
  - APPLICATION SITE ERYTHEMA [None]
